FAERS Safety Report 5989920-4 (Version None)
Quarter: 2008Q4

REPORT INFORMATION
  Report Type: 
  Country: None (occurrence: None)
  Receive Date: 20081210
  Receipt Date: 20081119
  Transmission Date: 20090506
  Serious: Yes (Hospitalization)
  Sender: FDA-Public Use
  Company Number: 6047201

PATIENT
  Age: 88 Year
  Sex: Female

DRUGS (4)
  1. LEVOTHYROXINE SODIUM [Suspect]
     Indication: HYPOTHYROIDISM
     Dosage: 50 MCG ( 50 MCG, 1 IN 1 D)
     Route: 048
  2. PREVISCAN (FLUINDIONE) [Suspect]
     Indication: DEEP VEIN THROMBOSIS
     Route: 048
     Dates: start: 20080513, end: 20080925
  3. PREDNISONE [Suspect]
     Dosage: 15 MG (5 MG,3 IN 1 D)
     Route: 048
  4. PENTASA [Concomitant]

REACTIONS (5)
  - ANAEMIA [None]
  - DRUG INTERACTION [None]
  - HAEMATOMA [None]
  - INTERNATIONAL NORMALISED RATIO ABNORMAL [None]
  - OVERDOSE [None]
